FAERS Safety Report 4712575-3 (Version None)
Quarter: 2005Q3

REPORT INFORMATION
  Report Type: 
  Country: None (occurrence: None)
  Receive Date: 20050712
  Receipt Date: 20010720
  Transmission Date: 20060218
  Serious: Yes (Other)
  Sender: FDA-Public Use
  Company Number: US-MERCK-01072133

PATIENT
  Age: 33 Year
  Sex: Male

DRUGS (2)
  1. PROPECIA [Suspect]
     Indication: MALE PATTERN BALDNESS
     Route: 048
     Dates: start: 20000101, end: 20011219
  2. VITAMINS (UNSPECIFIED) [Concomitant]
     Route: 065
     Dates: start: 20021023

REACTIONS (8)
  - BENIGN BREAST NEOPLASM [None]
  - BRONCHITIS [None]
  - CHEST PAIN [None]
  - FATIGUE [None]
  - GYNAECOMASTIA [None]
  - INSOMNIA [None]
  - PERIODONTITIS [None]
  - SINUSITIS [None]
